FAERS Safety Report 7642600-1 (Version None)
Quarter: 2011Q3

REPORT INFORMATION
  Report Type: 
  Country: None (occurrence: None)
  Receive Date: 20110728
  Receipt Date: 20110727
  Transmission Date: 20111222
  Serious: Yes (Other)
  Sender: FDA-Public Use
  Company Number: JP-PFIZER INC-2011156271

PATIENT
  Age: 56 Year
  Sex: Male

DRUGS (15)
  1. CLONAZEPAM [Concomitant]
     Dosage: 5 MG/DAY
  2. ALEVIATIN [Concomitant]
     Dosage: 12 MG/DAY
  3. MUCOSTA [Concomitant]
     Dosage: 100 MG, 2X/DAY
  4. HALCION [Concomitant]
     Dosage: 0.25 MG/DAY
  5. DIAZEPAM [Concomitant]
     Dosage: 16 MG/DAY
  6. TANNALBIN [Concomitant]
     Dosage: 1 G, 3X/DAY
  7. LOXONIN [Concomitant]
     Dosage: 60 MG, 2X/DAY
  8. VARENICLINE TARTRATE [Suspect]
     Dosage: UNK
     Route: 048
     Dates: start: 20110419, end: 20110401
  9. TEGRETOL [Concomitant]
     Dosage: 800 MG/DAY
  10. GABAPENTIN [Concomitant]
     Dosage: 400 MG, 3X/DAY
  11. TS-1 [Concomitant]
     Dosage: 20 MG, 2X/DAY
  12. VARENICLINE TARTRATE [Suspect]
     Dosage: 1MG, DAILY
     Dates: start: 20110401, end: 20110101
  13. RISUMIC [Concomitant]
     Dosage: 20 MG/DAY
  14. FAMOTIDINE [Concomitant]
     Dosage: 40 MG/DAY
  15. ACETAMINOPHEN [Concomitant]
     Dosage: 200 MG, 2X/DAY

REACTIONS (2)
  - LOSS OF CONSCIOUSNESS [None]
  - FALL [None]
